FAERS Safety Report 9340240 (Version 2)
Quarter: 2013Q2

REPORT INFORMATION
  Report Type: Spontaneous
  Country: BR (occurrence: None)
  Receive Date: 20130605
  Receipt Date: 20130625
  Transmission Date: 20140414
  Serious: Yes (Other)
  Sender: FDA-Public Use
  Company Number: BR-1198518

PATIENT
  Age: 84 Year
  Sex: Male

DRUGS (2)
  1. TRAVATAN 0.004 % OPHTHALMIC SOLUTION (TRAVATAN 0.004%) [Suspect]
     Indication: GLAUCOMA
     Route: 047
  2. COMBIGAN [Concomitant]

REACTIONS (2)
  - Blindness unilateral [None]
  - Eye pain [None]
